FAERS Safety Report 9960276 (Version 1)
Quarter: 2014Q1

REPORT INFORMATION
  Report Type: Spontaneous
  Country: US (occurrence: None)
  Receive Date: 20140228
  Receipt Date: 20140228
  Transmission Date: 20141002
  Serious: Yes (Other)
  Sender: FDA-Public Use
  Company Number: AUR-APL-2014-01874

PATIENT
  Sex: Male

DRUGS (1)
  1. DULOXETINE (DULOXETINE) (DULOXETINE) [Suspect]
     Indication: PRODUCT USED FOR UNKNOWN INDICATION
     Route: 048

REACTIONS (7)
  - Toxicity to various agents [None]
  - Confusional state [None]
  - Cognitive disorder [None]
  - Agitation [None]
  - Hypomania [None]
  - Psychomotor hyperactivity [None]
  - Restlessness [None]
